FAERS Safety Report 7254299-7 (Version None)
Quarter: 2011Q1

REPORT INFORMATION
  Report Type: 
  Country: None (occurrence: None)
  Receive Date: 20110129
  Receipt Date: 20100211
  Transmission Date: 20110831
  Serious: No
  Sender: FDA-Public Use
  Company Number: US-ABBOTT-10P-163-0620053-00

PATIENT
  Sex: Male

DRUGS (2)
  1. HUMIRA [Suspect]
     Indication: RHEUMATOID ARTHRITIS
     Route: 058
     Dates: start: 20081001, end: 20091101
  2. HUMIRA [Suspect]
     Dosage: APPROXIMATELY 6 TO 8 WEEKS KEPT OFF OF MEDICATION BEFORE RESTARTING.
     Dates: start: 20100101

REACTIONS (7)
  - RASH PUSTULAR [None]
  - BURSITIS [None]
  - RASH ERYTHEMATOUS [None]
  - LOCALISED INFECTION [None]
  - WOUND INFECTION STAPHYLOCOCCAL [None]
  - WOUND SECRETION [None]
  - OEDEMA PERIPHERAL [None]
